FAERS Safety Report 5644250-5 (Version None)
Quarter: 2008Q1

REPORT INFORMATION
  Report Type: 
  Country: None (occurrence: None)
  Receive Date: 20080227
  Receipt Date: 20080227
  Transmission Date: 20080703
  Serious: Yes (Other)
  Sender: FDA-Public Use
  Company Number: None

PATIENT
  Sex: Female
  Weight: 60.782 kg

DRUGS (1)
  1. LEVAQUIN [Suspect]
     Indication: URINARY TRACT INFECTION
     Dosage: 7 1/DAY
     Dates: start: 20080215, end: 20080217

REACTIONS (15)
  - ABNORMAL DREAMS [None]
  - AGEUSIA [None]
  - ANOREXIA [None]
  - ANOSMIA [None]
  - DIZZINESS [None]
  - DYSGEUSIA [None]
  - FALL [None]
  - FEELING ABNORMAL [None]
  - INSOMNIA [None]
  - LETHARGY [None]
  - LIGAMENT RUPTURE [None]
  - PAIN IN EXTREMITY [None]
  - PSYCHOMOTOR SKILLS IMPAIRED [None]
  - TINNITUS [None]
  - VITREOUS FLOATERS [None]
